FAERS Safety Report 7691107-4 (Version None)
Quarter: 2011Q3

REPORT INFORMATION
  Report Type: 
  Country: None (occurrence: None)
  Receive Date: 20110818
  Receipt Date: 20110810
  Transmission Date: 20111222
  Serious: Yes (Life-Threatening, Hospitalization, Disabling)
  Sender: FDA-Public Use
  Company Number: DE-ROCHE-796962

PATIENT
  Sex: Male
  Weight: 87.5 kg

DRUGS (7)
  1. CARENAL [Concomitant]
     Dosage: CAPSULE
     Route: 065
     Dates: start: 20110519
  2. METHOXY POLYETHYLENE GLYCOL-EPOETIN BETA [Suspect]
     Indication: ANAEMIA
     Dosage: LAST DOSE PRIOR TO SAE WAS ON 13 JUNE 2011
     Route: 042
     Dates: start: 20110613
  3. PROCORALAN [Concomitant]
     Dates: start: 20080314
  4. ASPIRIN [Concomitant]
     Dates: start: 20100928
  5. RENACET [Concomitant]
     Dates: start: 20110504
  6. ACTOS [Concomitant]
     Dates: start: 20080820
  7. CINACALCET HYDROCHLORIDE [Concomitant]
     Dates: start: 20110504

REACTIONS (2)
  - LIGAMENT SPRAIN [None]
  - ACCIDENT [None]
